FAERS Safety Report 23175714 (Version 1)
Quarter: 2023Q4

REPORT INFORMATION
  Report Type: Report from Study
  Country: US (occurrence: US)
  Receive Date: 20231113
  Receipt Date: 20231113
  Transmission Date: 20240109
  Serious: Yes (Other)
  Sender: FDA-Public Use
  Company Number: US-ABBVIE-5491222

PATIENT
  Sex: Female

DRUGS (1)
  1. SKYRIZI [Suspect]
     Active Substance: RISANKIZUMAB-RZAA
     Indication: Psoriasis
     Dosage: PSORIASIS LABEL INSTRUCTIONS-INJECT 150 MG UNDER THE SKIN AT WEEK 4, THEN EVERY 12 WEEKS
     Route: 058

REACTIONS (1)
  - Brain neoplasm malignant [Unknown]
